FAERS Safety Report 6434398-X (Version None)
Quarter: 2009Q4

REPORT INFORMATION
  Report Type: 
  Country: None (occurrence: None)
  Receive Date: 20091110
  Receipt Date: 20090105
  Transmission Date: 20100525
  Serious: No
  Sender: FDA-Public Use
  Company Number: US-ASTRAZENECA-2009UW18265

PATIENT
  Age: 53 Year
  Sex: Female

DRUGS (2)
  1. PRILOSEC OTC [Suspect]
     Dosage: 1 TABLET, 1 /DAY
     Route: 048
     Dates: end: 20080920
  2. VALIUM [Concomitant]
     Dosage: UNKNOWN

REACTIONS (4)
  - IMPAIRED HEALING [None]
  - INCORRECT DRUG ADMINISTRATION DURATION [None]
  - LABELLED DRUG-DRUG INTERACTION MEDICATION ERROR [None]
  - MICTURITION URGENCY [None]
